FAERS Safety Report 15557703 (Version 1)
Quarter: 2018Q4

REPORT INFORMATION
  Report Type: Spontaneous
  Country: US (occurrence: US)
  Receive Date: 20181027
  Receipt Date: 20181027
  Transmission Date: 20190205
  Serious: No
  Sender: FDA-Public Use
  Company Number: US-HORIZON-RAV-0079-2018

PATIENT
  Age: 3 Year
  Sex: Female

DRUGS (3)
  1. ARGININE [Concomitant]
     Active Substance: ARGININE
  2. RAVICTI [Suspect]
     Active Substance: GLYCEROL PHENYLBUTYRATE
     Indication: ARGININOSUCCINATE SYNTHETASE DEFICIENCY
     Dosage: 1.5 ML THREE TIMES DAILY
     Route: 048
     Dates: start: 20170228
  3. ZYRTEC [Concomitant]
     Active Substance: CETIRIZINE HYDROCHLORIDE

REACTIONS (1)
  - Vomiting [Unknown]
